FAERS Safety Report 4934894-8 (Version None)
Quarter: 2006Q1

REPORT INFORMATION
  Report Type: 
  Country: None (occurrence: None)
  Receive Date: 20060302
  Receipt Date: 20060223
  Transmission Date: 20060701
  Serious: Yes (Death)
  Sender: FDA-Public Use
  Company Number: S06-USA-00641-01

PATIENT
  Age: 18 Year
  Sex: Male
  Weight: 79.3795 kg

DRUGS (2)
  1. LEXAPRO [Suspect]
     Indication: DEPRESSION
     Dosage: 10 MG QD PO
     Route: 048
     Dates: start: 20030101, end: 20040522
  2. ALCOHOL [Suspect]
     Dates: start: 20040522, end: 20040522

REACTIONS (4)
  - ALCOHOL INTERACTION [None]
  - ALCOHOL PROBLEM [None]
  - COMPLETED SUICIDE [None]
  - POLYTRAUMATISM [None]
